FAERS Safety Report 25625567 (Version 1)
Quarter: 2025Q3

REPORT INFORMATION
  Report Type: Spontaneous
  Country: US (occurrence: US)
  Receive Date: 20250731
  Receipt Date: 20250731
  Transmission Date: 20251020
  Serious: Yes (Death, Other)
  Sender: AMGEN
  Company Number: US-AMGEN-USASP2025145115

PATIENT

DRUGS (4)
  1. PREDNISONE [Suspect]
     Active Substance: PREDNISONE
     Indication: Immunosuppressant drug therapy
     Route: 065
  2. PREDNISONE [Suspect]
     Active Substance: PREDNISONE
     Route: 065
  3. GLECAPREVIR\PIBRENTASVIR [Suspect]
     Active Substance: GLECAPREVIR\PIBRENTASVIR
     Indication: Antiviral prophylaxis
     Route: 065
  4. GLECAPREVIR\PIBRENTASVIR [Suspect]
     Active Substance: GLECAPREVIR\PIBRENTASVIR
     Dosage: 300/120 MILLIGRAM, QD (ADDITIONAL 13 DOSES)
     Route: 065

REACTIONS (61)
  - Mucormycosis [Fatal]
  - Posterior reversible encephalopathy syndrome [Unknown]
  - Kidney transplant rejection [Unknown]
  - Thrombotic microangiopathy [Unknown]
  - Pneumonia [Unknown]
  - Osteomyelitis [Unknown]
  - Atrial fibrillation [Unknown]
  - Sepsis [Unknown]
  - Cytomegalovirus viraemia [Unknown]
  - Bacteraemia [Unknown]
  - Encephalitis [Unknown]
  - Complications of transplanted kidney [Unknown]
  - Ileus [Unknown]
  - Duodenal ulcer [Unknown]
  - Embolism [Unknown]
  - Hyperkalaemia [Unknown]
  - Hypoxia [Unknown]
  - Hypokalaemia [Unknown]
  - Hepatitis C [Unknown]
  - Haemolytic uraemic syndrome [Unknown]
  - Colon cancer [Unknown]
  - Anal fistula [Unknown]
  - Urinary tract infection [Unknown]
  - Pyrexia [Unknown]
  - COVID-19 [Unknown]
  - BK virus infection [Unknown]
  - Soft tissue infection [Unknown]
  - Wound infection [Unknown]
  - Angiopathy [Unknown]
  - White blood cell count decreased [Unknown]
  - Neutrophil count decreased [Unknown]
  - Anaemia [Unknown]
  - Platelet count decreased [Unknown]
  - Blood creatinine increased [Unknown]
  - Mental status changes [Unknown]
  - Proteinuria [Unknown]
  - Alanine aminotransferase increased [Recovered/Resolved]
  - Aspartate aminotransferase increased [Recovered/Resolved]
  - Blood bilirubin increased [Recovered/Resolved]
  - Diarrhoea [Unknown]
  - Abdominal pain [Unknown]
  - Blood alkaline phosphatase increased [Unknown]
  - Gastrointestinal disorder [Unknown]
  - Haemorrhoids [Unknown]
  - Dyspnoea [Unknown]
  - Troponin I increased [Unknown]
  - Chest pain [Unknown]
  - Hypertension [Unknown]
  - Oedema peripheral [Unknown]
  - Hyperglycaemia [Unknown]
  - Oedema genital [Unknown]
  - Non-cardiac chest pain [Unknown]
  - Pruritus [Unknown]
  - Back pain [Unknown]
  - Dizziness [Unknown]
  - Eye pain [Unknown]
  - Muscular weakness [Unknown]
  - Pain in extremity [Unknown]
  - Paraesthesia [Unknown]
  - Haematoma [Unknown]
  - Wound complication [Unknown]
